FAERS Safety Report 8328822-5 (Version None)
Quarter: 2012Q2

REPORT INFORMATION
  Report Type: 
  Country: None (occurrence: None)
  Receive Date: 20120502
  Receipt Date: 20120425
  Transmission Date: 20120825
  Serious: Yes (Hospitalization)
  Sender: FDA-Public Use
  Company Number: CN-AMGEN-CHNCT2012026045

PATIENT
  Age: 57 Year
  Sex: Male
  Weight: 69 kg

DRUGS (28)
  1. GLUTATHIONE [Concomitant]
     Dosage: UNK UNK, UNK
     Route: 042
     Dates: start: 20120214, end: 20120424
  2. VITAMIN C [Concomitant]
     Indication: PROPHYLAXIS
     Dosage: UNK
     Route: 042
     Dates: start: 20120228, end: 20120228
  3. DIPHENHYDRAMINE HYDROCHLORIDE [Concomitant]
     Dosage: UNK
     Route: 050
     Dates: start: 20120410, end: 20120411
  4. MOXIFLOXACIN HYDROCHLORIDE [Concomitant]
     Indication: ANTIINFLAMMATORY THERAPY
     Dosage: UNK
     Route: 042
     Dates: start: 20120216, end: 20120222
  5. ERYTHROPOIETIN HUMAN [Concomitant]
     Dosage: UNK
     Route: 050
     Dates: start: 20120328, end: 20120329
  6. BACILLUS LICHENFORMIS [Concomitant]
     Indication: DIARRHOEA
     Dosage: UNK
     Route: 048
     Dates: start: 20120328, end: 20120329
  7. GLYCYRRHIZINATE POTASSIUM [Concomitant]
     Dosage: UNK
     Route: 042
     Dates: start: 20120410, end: 20120411
  8. LANSOPRAZOLE [Concomitant]
     Dosage: UNK
     Route: 042
     Dates: start: 20120314, end: 20120329
  9. POTASSIUM CHLORIDE [Concomitant]
     Indication: MINERAL SUPPLEMENTATION
  10. PANITUMUMAB [Suspect]
     Indication: COLORECTAL CANCER
     Dosage: UNK
     Dates: start: 20120215
  11. ACETAMINOPHEN [Concomitant]
     Indication: ANALGESIC THERAPY
     Dosage: UNK
     Route: 048
     Dates: start: 20120220
  12. POTASSIUM ASPARTATE [Concomitant]
     Indication: PROPHYLAXIS
     Dosage: UNK UNK, UNK
     Route: 042
     Dates: start: 20120228, end: 20120416
  13. MEGESTROL ACETATE [Concomitant]
     Indication: INCREASED APPETITE
     Dosage: UNK
     Route: 048
     Dates: start: 20120328, end: 20120329
  14. CIMETIDINE [Concomitant]
     Dosage: UNK
     Route: 042
     Dates: start: 20120410, end: 20120424
  15. IRON SUCROSE [Concomitant]
     Indication: ANAEMIA
  16. MAGNESIUM ASPARTATE [Concomitant]
     Dosage: UNK
     Route: 042
     Dates: start: 20120228, end: 20120416
  17. VITAMIN B6 [Concomitant]
     Indication: PROPHYLAXIS
     Dosage: UNK UNK, UNK
     Route: 042
     Dates: start: 20120217, end: 20120416
  18. ALBUMIN (HUMAN) [Concomitant]
     Indication: SUPPLEMENTATION THERAPY
     Dosage: UNK
     Route: 042
     Dates: start: 20120410, end: 20120411
  19. IRON SUCROSE [Concomitant]
     Indication: MINERAL SUPPLEMENTATION
     Dosage: UNK
     Route: 042
     Dates: start: 20120218, end: 20120410
  20. OMEPRAZOLE SODIUM [Concomitant]
     Dosage: UNK UNK, UNK
     Route: 042
     Dates: start: 20120214, end: 20120327
  21. RIBOFLAVIN SODIUM PHOSPHATE [Concomitant]
     Indication: APHTHOUS STOMATITIS
     Dosage: UNK UNK, UNK
     Route: 042
     Dates: start: 20120314, end: 20120329
  22. RIBOFLAVIN SODIUM PHOSPHATE [Concomitant]
     Indication: GLOSSITIS
  23. BERBERINE [Concomitant]
     Dosage: UNK
     Route: 048
     Dates: start: 20120321, end: 20120322
  24. AMINO ACIDS [Concomitant]
     Dosage: UNK
     Route: 042
     Dates: start: 20120214, end: 20120424
  25. MULTI-VITAMINS [Concomitant]
     Indication: APHTHOUS STOMATITIS
     Dosage: UNK UNK, UNK
     Route: 042
     Dates: start: 20120214, end: 20120329
  26. MULTI-VITAMINS [Concomitant]
     Indication: GLOSSITIS
  27. LOPERAMIDE HCL [Concomitant]
     Indication: DIARRHOEA
     Dosage: UNK
     Route: 048
     Dates: start: 20120322
  28. POTASSIUM CHLORIDE [Concomitant]
     Indication: HYPOKALAEMIA
     Dosage: UNK UNK, UNK
     Route: 042
     Dates: start: 20120217, end: 20120418

REACTIONS (1)
  - HAEMOGLOBIN DECREASED [None]
